FAERS Safety Report 4519202-9 (Version None)
Quarter: 2004Q4

REPORT INFORMATION
  Report Type: 
  Country: None (occurrence: None)
  Receive Date: 20041206
  Receipt Date: 20041015
  Transmission Date: 20050328
  Serious: Yes (Hospitalization)
  Sender: FDA-Public Use
  Company Number: US-MERCK-0410USA02454

PATIENT
  Age: 82 Year
  Sex: Female
  Weight: 69 kg

DRUGS (12)
  1. VIOXX [Suspect]
     Indication: OSTEOPOROSIS
     Route: 048
     Dates: start: 20020718, end: 20040331
  2. PREVACID [Concomitant]
     Route: 065
  3. LOPRESSOR [Concomitant]
     Route: 065
  4. LIPITOR [Concomitant]
     Route: 065
  5. LOPID [Concomitant]
     Route: 065
  6. CALCIUM (UNSPECIFIED) AND VITAMIN D (UNSPECIFIED) [Concomitant]
     Route: 065
  7. VITAMINS (UNSPECIFIED) [Concomitant]
     Route: 065
  8. ASPIRIN [Concomitant]
     Route: 065
  9. LASIX [Concomitant]
     Route: 065
  10. DYAZIDE [Concomitant]
     Route: 065
  11. FOSAMAX [Concomitant]
     Route: 065
  12. NORVASC [Concomitant]
     Route: 065

REACTIONS (11)
  - AORTIC VALVE INCOMPETENCE [None]
  - BLOOD PRESSURE INADEQUATELY CONTROLLED [None]
  - CEREBROVASCULAR ACCIDENT [None]
  - CHEST PAIN [None]
  - DYSPNOEA [None]
  - FATIGUE [None]
  - JOINT SWELLING [None]
  - LACUNAR INFARCTION [None]
  - MACULAR DEGENERATION [None]
  - OEDEMA PERIPHERAL [None]
  - TRANSIENT ISCHAEMIC ATTACK [None]
